FAERS Safety Report 13002327 (Version 2)
Quarter: 2016Q4

REPORT INFORMATION
  Report Type: Spontaneous
  Country: US (occurrence: US)
  Receive Date: 20161206
  Receipt Date: 20161206
  Transmission Date: 20170207
  Serious: No
  Sender: FDA-Public Use
  Company Number: US-BAUSCH-BL-2016-004632

PATIENT
  Sex: Male

DRUGS (2)
  1. ACZONE [Suspect]
     Active Substance: DAPSONE
     Indication: PIGMENTATION DISORDER
     Route: 065
  2. ONEXTON [Suspect]
     Active Substance: BENZOYL PEROXIDE\CLINDAMYCIN PHOSPHATE
     Indication: PIGMENTATION DISORDER
     Route: 065

REACTIONS (2)
  - Hair colour changes [Unknown]
  - Treatment noncompliance [Unknown]
